FAERS Safety Report 19043096 (Version 1)
Quarter: 2021Q1

REPORT INFORMATION
  Report Type: Spontaneous
  Country: US (occurrence: US)
  Receive Date: 20210322
  Receipt Date: 20210322
  Transmission Date: 20210420
  Serious: Yes (Hospitalization)
  Sender: FDA-Public Use
  Company Number: None

PATIENT
  Sex: Female

DRUGS (2)
  1. PULMOZYME [Suspect]
     Active Substance: DORNASE ALFA
     Indication: CYTOGENETIC ABNORMALITY
     Dosage: ?          OTHER DOSE:1 VIAL;OTHER ROUTE:INH?
     Route: 055
     Dates: start: 20180524
  2. NUZYRA(RETAIL) [Concomitant]

REACTIONS (2)
  - Infective pulmonary exacerbation of cystic fibrosis [None]
  - Pneumonia [None]
